FAERS Safety Report 7426944-4 (Version None)
Quarter: 2011Q2

REPORT INFORMATION
  Report Type: 
  Country: None (occurrence: None)
  Receive Date: 20110420
  Receipt Date: 20101019
  Transmission Date: 20111010
  Serious: Yes (Hospitalization)
  Sender: FDA-Public Use
  Company Number: US-BAYER-201035672NA

PATIENT
  Age: 16 Year
  Sex: Female
  Weight: 54.422 kg

DRUGS (8)
  1. YASMIN [Suspect]
     Indication: PRODUCT USED FOR UNKNOWN INDICATION
     Route: 048
     Dates: start: 20080501, end: 20100101
  2. ADVIL LIQUI-GELS [Concomitant]
  3. YAZ [Suspect]
     Indication: PRODUCT USED FOR UNKNOWN INDICATION
     Dosage: UNK UNK, UNK
     Route: 048
     Dates: start: 20080501, end: 20100201
  4. IBUPROFEN [Concomitant]
  5. LO/OVRAL [Concomitant]
     Dosage: UNK UNK, CONT
  6. RANITIDINE [Concomitant]
  7. ZANTAC [Concomitant]
  8. CLARITIN [Concomitant]
     Dosage: UNK

REACTIONS (3)
  - CHOLELITHIASIS [None]
  - ABDOMINAL PAIN [None]
  - CHOLECYSTITIS [None]
